FAERS Safety Report 4646465-1 (Version None)
Quarter: 2005Q2

REPORT INFORMATION
  Report Type: 
  Country: None (occurrence: None)
  Receive Date: 20050427
  Receipt Date: 20040405
  Transmission Date: 20051028
  Serious: No
  Sender: FDA-Public Use
  Company Number: US-GLAXOSMITHKLINE-A0505942A

PATIENT
  Age: 9 Year
  Sex: Male

DRUGS (4)
  1. FLOVENT [Suspect]
     Indication: ASTHMA
     Dosage: 88MCG TWICE PER DAY
     Route: 055
     Dates: start: 20040105
  2. SINGULAIR [Concomitant]
     Route: 048
  3. ALLEGRA [Concomitant]
  4. ALBUTEROL [Concomitant]

REACTIONS (1)
  - ASTHMA [None]
